FAERS Safety Report 13339138 (Version 1)
Quarter: 2017Q1

REPORT INFORMATION
  Report Type: Spontaneous
  Country: US (occurrence: US)
  Receive Date: 20170315
  Receipt Date: 20170315
  Transmission Date: 20170428
  Serious: No
  Sender: FDA-Public Use
  Company Number: US-SHIRE-US201705829

PATIENT
  Age: 7 Decade
  Sex: Female

DRUGS (1)
  1. XIIDRA [Suspect]
     Active Substance: LIFITEGRAST
     Indication: DRY EYE
     Dosage: UNK, UNKNOWN
     Route: 047
     Dates: start: 20170310

REACTIONS (4)
  - Instillation site erythema [Unknown]
  - Instillation site lacrimation [Unknown]
  - Drug ineffective [Unknown]
  - Instillation site irritation [Unknown]

NARRATIVE: CASE EVENT DATE: 201703
